FAERS Safety Report 19619073 (Version 1)
Quarter: 2021Q3

REPORT INFORMATION
  Report Type: Report from Study
  Country: US (occurrence: US)
  Receive Date: 20210728
  Receipt Date: 20210728
  Transmission Date: 20211014
  Serious: Yes (Other)
  Sender: FDA-Public Use
  Company Number: US-AMGEN-USASL2020123838

PATIENT
  Age: 43 Year
  Sex: Male

DRUGS (1)
  1. ENBREL [Suspect]
     Active Substance: ETANERCEPT
     Indication: RHEUMATOID ARTHRITIS
     Dosage: 50 MILLIGRAM, QWK
     Route: 065
     Dates: end: 20201008

REACTIONS (16)
  - Lymphadenopathy [Unknown]
  - Feeling hot [Not Recovered/Not Resolved]
  - Rash [Unknown]
  - Pruritus [Not Recovered/Not Resolved]
  - Nasal discharge discolouration [Unknown]
  - Oropharyngeal discomfort [Not Recovered/Not Resolved]
  - Night sweats [Unknown]
  - Systemic lupus erythematosus [Unknown]
  - Dysuria [Unknown]
  - Facial discomfort [Unknown]
  - Fatigue [Unknown]
  - Back pain [Unknown]
  - Drug hypersensitivity [Unknown]
  - Feeling abnormal [Not Recovered/Not Resolved]
  - Dry mouth [Unknown]
  - Arthralgia [Unknown]

NARRATIVE: CASE EVENT DATE: 20200723
